FAERS Safety Report 22233210 (Version 2)
Quarter: 2023Q2

REPORT INFORMATION
  Report Type: Report from Study
  Country: US (occurrence: US)
  Receive Date: 20230420
  Receipt Date: 20230425
  Transmission Date: 20230721
  Serious: Yes (Other)
  Sender: FDA-Public Use
  Company Number: US-JNJFOC-20230431119

PATIENT
  Age: 36 Year
  Sex: Female

DRUGS (1)
  1. SPRAVATO [Suspect]
     Active Substance: ESKETAMINE
     Indication: Depression
     Dosage: 56 MG, 1 DOSE
     Dates: start: 20230412, end: 20230412

REACTIONS (2)
  - Suicidal ideation [Unknown]
  - Seizure [Unknown]

NARRATIVE: CASE EVENT DATE: 20230401
